FAERS Safety Report 10448649 (Version 1)
Quarter: 2014Q3

REPORT INFORMATION
  Report Type: Spontaneous
  Country: DE (occurrence: DE)
  Receive Date: 20140912
  Receipt Date: 20140912
  Transmission Date: 20150326
  Serious: Yes (Congenital Anomaly, Other)
  Sender: FDA-Public Use
  Company Number: DE-AUROBINDO-AUR-APL-2014-09576

PATIENT
  Sex: Female
  Weight: 3.4 kg

DRUGS (4)
  1. AMOXICILLIN                        /02043401/ [Concomitant]
     Indication: PNEUMONIA
     Dosage: 3000 MG, ONCE A DAY
     Route: 064
  2. MONTELUKAST [Suspect]
     Active Substance: MONTELUKAST SODIUM
     Indication: ALLERGIC COUGH
     Dosage: 10 MG, ONCE A DAY
     Route: 064
     Dates: start: 20130527, end: 20130621
  3. BUDECORT [Suspect]
     Active Substance: BUDESONIDE
     Indication: ALLERGIC COUGH
     Dosage: UNK
     Route: 064
     Dates: start: 20140527, end: 20140313
  4. CETIRIZINE [Suspect]
     Active Substance: CETIRIZINE HYDROCHLORIDE
     Indication: HYPERSENSITIVITY
     Dosage: 10 MG, ONCE A DAY
     Route: 064
     Dates: start: 20130527, end: 20140313

REACTIONS (4)
  - Atrial septal defect [Not Recovered/Not Resolved]
  - Maternal drugs affecting foetus [None]
  - Pulmonary artery stenosis [Not Recovered/Not Resolved]
  - Foetal exposure during pregnancy [Unknown]
